FAERS Safety Report 9486799 (Version 2)
Quarter: 2013Q4

REPORT INFORMATION
  Report Type: Spontaneous
  Country: GB (occurrence: GB)
  Receive Date: 20130829
  Receipt Date: 20131018
  Transmission Date: 20140711
  Serious: Yes (Other)
  Sender: FDA-Public Use
  Company Number: PHFR2013GB004939

PATIENT
  Age: 42 Year
  Sex: Female

DRUGS (4)
  1. GILENYA [Suspect]
     Indication: MULTIPLE SCLEROSIS
     Dosage: 0.5 MG, QD
     Route: 048
     Dates: start: 20130311, end: 20130621
  2. LEVOTHYROXINE [Concomitant]
     Indication: HYPERTHYROIDISM
     Dosage: 100 MG, UNK
     Route: 048
  3. BECLOMETASONE [Concomitant]
     Indication: ASTHMA
     Dosage: 100 MG, UNK
  4. LANSOPRAZOLE [Concomitant]
     Dosage: 50 MG, UNK
     Route: 048
     Dates: end: 2013

REACTIONS (6)
  - Multiple sclerosis [Recovering/Resolving]
  - Nuclear magnetic resonance imaging abnormal [Recovering/Resolving]
  - Optic neuritis [Unknown]
  - Central nervous system lesion [Unknown]
  - Hemiparesis [Unknown]
  - Speech disorder [Recovering/Resolving]
